FAERS Safety Report 7037917-8 (Version None)
Quarter: 2010Q4

REPORT INFORMATION
  Report Type: 
  Country: None (occurrence: None)
  Receive Date: 20101011
  Receipt Date: 20101004
  Transmission Date: 20110411
  Serious: Yes (Hospitalization)
  Sender: FDA-Public Use
  Company Number: GB-TEVA-251047ISR

PATIENT
  Sex: Male

DRUGS (3)
  1. AMIODARONE [Suspect]
     Indication: ARRHYTHMIA
     Route: 048
  2. AMIODARONE [Suspect]
     Route: 048
  3. ROTIGOTINE [Suspect]
     Route: 062
     Dates: start: 20100923

REACTIONS (3)
  - DELUSION [None]
  - DRUG INTERACTION [None]
  - HALLUCINATION [None]
